FAERS Safety Report 19032364 (Version 1)
Quarter: 2021Q1

REPORT INFORMATION
  Report Type: Spontaneous
  Country: US (occurrence: US)
  Receive Date: 20210319
  Receipt Date: 20210319
  Transmission Date: 20210420
  Serious: Yes (Life-Threatening, Hospitalization, Other)
  Sender: FDA-Public Use
  Company Number: US-PACIRA-2021000230

PATIENT

DRUGS (1)
  1. EXPAREL [Suspect]
     Active Substance: BUPIVACAINE
     Dosage: 1.5 ML TO SUBPLEURAL SPACE, 5?6 ML USED TO INFILTRATE THE 5 PORT INCISIONS AT THE END OF PROCEDURE
     Route: 050

REACTIONS (12)
  - Chylothorax [Unknown]
  - Wound infection [Unknown]
  - Urinary retention [Unknown]
  - Atelectasis [Unknown]
  - Hospitalisation [Unknown]
  - Off label use [Unknown]
  - Post procedural complication [Unknown]
  - Atrial fibrillation [Unknown]
  - Chest tube insertion [Unknown]
  - Pneumonia [Unknown]
  - Pulmonary air leakage [Unknown]
  - Urinary tract infection [Unknown]
